FAERS Safety Report 7959081-0 (Version None)
Quarter: 2011Q4

REPORT INFORMATION
  Report Type: 
  Country: None (occurrence: None)
  Receive Date: 20111206
  Receipt Date: 20111206
  Transmission Date: 20120403
  Serious: Yes (Hospitalization)
  Sender: FDA-Public Use
  Company Number: None

PATIENT
  Age: 15 Year
  Sex: Male
  Weight: 61.4 kg

DRUGS (4)
  1. TRILEPTAL [Concomitant]
     Route: 048
  2. LANTUS [Concomitant]
     Route: 058
  3. HUMALOG [Concomitant]
  4. ASENAPINE [Suspect]

REACTIONS (5)
  - MUSCLE TWITCHING [None]
  - CONFUSIONAL STATE [None]
  - BLOOD GLUCOSE DECREASED [None]
  - SUICIDE ATTEMPT [None]
  - MENTAL STATUS CHANGES [None]
